FAERS Safety Report 6175198-8 (Version None)
Quarter: 2009Q2

REPORT INFORMATION
  Report Type: 
  Country: None (occurrence: None)
  Receive Date: 20090430
  Receipt Date: 20081217
  Transmission Date: 20091009
  Serious: No
  Sender: FDA-Public Use
  Company Number: US-ASTRAZENECA-2008UW28219

PATIENT
  Age: 41 Year
  Sex: Female
  Weight: 61.2 kg

DRUGS (3)
  1. NEXIUM [Suspect]
     Indication: GASTRIC ULCER
     Dosage: TWICE A DAY
     Route: 048
  2. HYDROCHLOROTHIAZIDE [Concomitant]
  3. HIGH BLOOD PRESSURE MEDICATION [Concomitant]

REACTIONS (3)
  - AGEUSIA [None]
  - DECREASED APPETITE [None]
  - HEADACHE [None]
